FAERS Safety Report 14323514 (Version 3)
Quarter: 2018Q2

REPORT INFORMATION
  Report Type: Spontaneous
  Country: US (occurrence: US)
  Receive Date: 20171226
  Receipt Date: 20180416
  Transmission Date: 20180711
  Serious: No
  Sender: FDA-Public Use
  Company Number: PHEH2017US041430

PATIENT
  Sex: Female
  Weight: 58.5 kg

DRUGS (1)
  1. TIMOLOL GFS [Suspect]
     Active Substance: TIMOLOL MALEATE
     Indication: GLAUCOMA
     Dosage: 1 GTT, QD
     Route: 047

REACTIONS (4)
  - Product quality issue [Unknown]
  - Product dropper issue [Unknown]
  - Product packaging issue [Unknown]
  - Incorrect dose administered [Not Recovered/Not Resolved]
